FAERS Safety Report 9406326 (Version 1)
Quarter: 2013Q3

REPORT INFORMATION
  Report Type: Spontaneous
  Country: ES (occurrence: ES)
  Receive Date: 20130717
  Receipt Date: 20130717
  Transmission Date: 20140515
  Serious: Yes (Hospitalization, Other)
  Sender: FDA-Public Use
  Company Number: ES-PFIZER INC-2013201971

PATIENT
  Age: 41 Year
  Sex: Female

DRUGS (3)
  1. DOSTINEX [Suspect]
     Indication: LACTATION INHIBITION THERAPY
     Dosage: 0.25 MG ONCE IN THE FIRST WEEK, THEN 2 MORE DOSES 2 WEEKS LATER
  2. RISPERIDONE [Suspect]
     Indication: PSYCHOTIC DISORDER
     Dosage: 1 MG, 1X/DAY
  3. RISPERIDONE [Suspect]
     Dosage: 3 MG/DAY, WHEN THE PATIENT SUFFERED STRESS

REACTIONS (3)
  - Overdose [Recovered/Resolved]
  - Suicide attempt [Recovered/Resolved]
  - Brief psychotic disorder, with postpartum onset [Recovering/Resolving]
